FAERS Safety Report 4384330-8 (Version None)
Quarter: 2004Q2

REPORT INFORMATION
  Report Type: 
  Country: None (occurrence: None)
  Receive Date: 20040618
  Receipt Date: 20040608
  Transmission Date: 20050107
  Serious: Yes (Death)
  Sender: FDA-Public Use
  Company Number: R301042-PAP-USA

PATIENT
  Age: 63 Year
  Sex: Male

DRUGS (3)
  1. ACIPHEX [Suspect]
     Dosage: 20 MG, ORAL
     Route: 048
     Dates: start: 20031202
  2. OXYCONTIN [Concomitant]
  3. LORTAB [Concomitant]

REACTIONS (4)
  - ARTERIAL INJURY [None]
  - GUN SHOT WOUND [None]
  - HEAD INJURY [None]
  - MUSCLE HAEMORRHAGE [None]
